FAERS Safety Report 16546193 (Version 1)
Quarter: 2019Q3

REPORT INFORMATION
  Report Type: Spontaneous
  Country: US (occurrence: US)
  Receive Date: 20190528
  Receipt Date: 20190528
  Transmission Date: 20191004
  Serious: No
  Sender: FDA-Public Use
  Company Number: None

PATIENT
  Age: 62 Year
  Sex: Female

DRUGS (8)
  1. VALIUM [Suspect]
     Active Substance: DIAZEPAM
     Indication: DEPRESSION
     Dates: start: 19920730
  2. VALIUM [Suspect]
     Active Substance: DIAZEPAM
     Indication: BIPOLAR DISORDER
     Dates: start: 19920730
  3. VALIUM [Suspect]
     Active Substance: DIAZEPAM
     Indication: OBSESSIVE-COMPULSIVE DISORDER
     Dates: start: 19920730
  4. TRAMADOL. [Concomitant]
     Active Substance: TRAMADOL
  5. ZOLPIDEM [Concomitant]
     Active Substance: ZOLPIDEM TARTRATE
  6. KLONOPIN [Suspect]
     Active Substance: CLONAZEPAM
     Dates: start: 19920730
  7. GABAPENTIN. [Concomitant]
     Active Substance: GABAPENTIN
  8. BUSPIRONE HCL [Concomitant]
     Active Substance: BUSPIRONE HYDROCHLORIDE

REACTIONS (2)
  - Delirium tremens [None]
  - Withdrawal syndrome [None]

NARRATIVE: CASE EVENT DATE: 20190520
